FAERS Safety Report 5460101-6 (Version None)
Quarter: 2007Q3

REPORT INFORMATION
  Report Type: 
  Country: None (occurrence: None)
  Receive Date: 20070919
  Receipt Date: 20070522
  Transmission Date: 20080115
  Serious: Yes (Other)
  Sender: FDA-Public Use
  Company Number: US-ASTRAZENECA-2007UW12618

PATIENT
  Age: 78 Year
  Sex: Female
  Weight: 52.2 kg

DRUGS (5)
  1. SEROQUEL [Suspect]
     Indication: STRESS
     Dosage: 1/4 TAB 50 MG/DAILY PO
     Route: 048
  2. WARFARIN SODIUM [Concomitant]
  3. ANTIHYPERTENSIVES [Concomitant]
  4. LEVOTHYROXINE SODIUM [Concomitant]
  5. CHOLESTEROL LOWERING MEDICATIONS [Concomitant]

REACTIONS (2)
  - DEPRESSION [None]
  - SUICIDAL IDEATION [None]
